FAERS Safety Report 6806579-4 (Version None)
Quarter: 2010Q2

REPORT INFORMATION
  Report Type: 
  Country: None (occurrence: None)
  Receive Date: 20100629
  Receipt Date: 20080611
  Transmission Date: 20101027
  Serious: No
  Sender: FDA-Public Use
  Company Number: US-PFIZER INC-2008022801

PATIENT
  Sex: Male
  Weight: 86.18 kg

DRUGS (4)
  1. VIAGRA [Suspect]
     Indication: ERECTILE DYSFUNCTION
  2. FINASTERIDE [Concomitant]
  3. IBUPROFEN [Concomitant]
     Dosage: ONCE OR TWICE A DAY
  4. ACETYLSALICYLIC ACID [Concomitant]

REACTIONS (5)
  - DRUG EFFECT DECREASED [None]
  - DYSPEPSIA [None]
  - HEADACHE [None]
  - INCORRECT DOSE ADMINISTERED [None]
  - NASAL CONGESTION [None]
